FAERS Safety Report 15902771 (Version 2)
Quarter: 2019Q1

REPORT INFORMATION
  Report Type: Spontaneous
  Country: AU (occurrence: AU)
  Receive Date: 20190202
  Receipt Date: 20190228
  Transmission Date: 20190417
  Serious: Yes (Other)
  Sender: FDA-Public Use
  Company Number: AU-AMGEN-AUSSP2019016462

PATIENT
  Age: 44 Year
  Sex: Female

DRUGS (3)
  1. DIANE-35 ED [Concomitant]
     Indication: PRODUCT USED FOR UNKNOWN INDICATION
     Dosage: UNK
     Route: 065
  2. AIMOVIG [Suspect]
     Active Substance: ERENUMAB-AOOE
     Indication: MIGRAINE
     Dosage: 70 MG, UNK
     Route: 065
     Dates: start: 20181030, end: 20181030
  3. AIMOVIG [Suspect]
     Active Substance: ERENUMAB-AOOE
     Dosage: 140 MG, UNK
     Route: 058
     Dates: start: 20181206, end: 20181206

REACTIONS (1)
  - Injection site haemorrhage [Recovered/Resolved]
